FAERS Safety Report 23688495 (Version 3)
Quarter: 2024Q3

REPORT INFORMATION
  Report Type: Spontaneous
  Country: US (occurrence: US)
  Receive Date: 20240329
  Receipt Date: 20240702
  Transmission Date: 20241016
  Serious: No
  Sender: SANDOZ
  Company Number: US-SANDOZ-SDZ2024US033195

PATIENT
  Sex: Female

DRUGS (1)
  1. ALBUTEROL SULFATE [Suspect]
     Active Substance: ALBUTEROL SULFATE
     Indication: Asthma
     Dosage: AEROSOL FOR ORAL INHALATION
     Route: 048

REACTIONS (3)
  - Off label use [Unknown]
  - Product dose omission issue [Unknown]
  - Device mechanical issue [Unknown]
